FAERS Safety Report 8567796-9 (Version None)
Quarter: 2012Q3

REPORT INFORMATION
  Report Type: 
  Country: None (occurrence: None)
  Receive Date: 20120803
  Receipt Date: 20120726
  Transmission Date: 20120928
  Serious: Yes (Hospitalization, Other)
  Sender: FDA-Public Use
  Company Number: US-ROCHE-1092332

PATIENT
  Sex: Female

DRUGS (1)
  1. XOLAIR [Suspect]
     Indication: ASTHMA
     Route: 065

REACTIONS (6)
  - COUGH [None]
  - DYSPNOEA [None]
  - ASTHENIA [None]
  - MALAISE [None]
  - ASTHMA [None]
  - PREGNANCY [None]
